FAERS Safety Report 11051240 (Version 2)
Quarter: 2015Q4

REPORT INFORMATION
  Report Type: Spontaneous
  Country: IT (occurrence: IT)
  Receive Date: 20150421
  Receipt Date: 20151027
  Transmission Date: 20160304
  Serious: Yes (Other)
  Sender: FDA-Public Use
  Company Number: IT-SA-2015SA049332

PATIENT
  Age: 75 Year
  Sex: Male

DRUGS (5)
  1. LASIX [Suspect]
     Active Substance: FUROSEMIDE
     Indication: HYPERTENSION
     Route: 048
     Dates: start: 20040101, end: 20060527
  2. PERMIXON [Concomitant]
     Active Substance: SAW PALMETTO
  3. CARDIRENE [Concomitant]
     Active Substance: ASPIRIN DL-LYSINE
  4. ANTRA [Concomitant]
     Active Substance: OMEPRAZOLE
  5. OMNIC [Suspect]
     Active Substance: TAMSULOSIN HYDROCHLORIDE
     Indication: BENIGN PROSTATIC HYPERPLASIA
     Route: 048
     Dates: start: 20060101, end: 20060527

REACTIONS (1)
  - Syncope [Recovered/Resolved]

NARRATIVE: CASE EVENT DATE: 20060527
